FAERS Safety Report 11419777 (Version 1)
Quarter: 2015Q3

REPORT INFORMATION
  Report Type: Spontaneous
  Country: FR (occurrence: FR)
  Receive Date: 20150826
  Receipt Date: 20150826
  Transmission Date: 20151125
  Serious: Yes (Hospitalization)
  Sender: FDA-Public Use
  Company Number: FR-SA-2015SA126314

PATIENT
  Age: 85 Year
  Sex: Female

DRUGS (4)
  1. BACTRIM [Suspect]
     Active Substance: SULFAMETHOXAZOLE\TRIMETHOPRIM
     Dosage: 2 AMPULE DAILY
     Route: 042
     Dates: start: 20150427, end: 20150514
  2. RIFADINE [Suspect]
     Active Substance: RIFAMPIN
     Route: 065
     Dates: start: 20150427
  3. ORBENINE [Concomitant]
     Active Substance: CLOXACILLIN SODIUM
     Dates: start: 20150420, end: 20150427
  4. BACTRIM [Suspect]
     Active Substance: SULFAMETHOXAZOLE\TRIMETHOPRIM
     Route: 042
     Dates: start: 20150420

REACTIONS (1)
  - Interstitial lung disease [Unknown]

NARRATIVE: CASE EVENT DATE: 20150514
